FAERS Safety Report 19217586 (Version 1)
Quarter: 2021Q2

REPORT INFORMATION
  Report Type: Spontaneous
  Country: US (occurrence: US)
  Receive Date: 20210505
  Receipt Date: 20210505
  Transmission Date: 20210717
  Serious: Yes (Hospitalization)
  Sender: FDA-Public Use
  Company Number: None

PATIENT
  Sex: Female

DRUGS (2)
  1. ANASTROZOLE. [Suspect]
     Active Substance: ANASTROZOLE
     Indication: BREAST CANCER FEMALE
     Route: 048
     Dates: start: 20200228
  2. METFORMIN, LISINOPRIL, SIMVASTATIN, LANTUS [Concomitant]

REACTIONS (3)
  - Cardiac disorder [None]
  - Sleep talking [None]
  - Malaise [None]
